FAERS Safety Report 8073461-7 (Version None)
Quarter: 2012Q1

REPORT INFORMATION
  Report Type: 
  Country: None (occurrence: None)
  Receive Date: 20120126
  Receipt Date: 20120126
  Transmission Date: 20120608
  Serious: Yes (Other)
  Sender: FDA-Public Use
  Company Number: None

PATIENT
  Age: 45 Year
  Sex: Male
  Weight: 74.842 kg

DRUGS (2)
  1. LEVOFLOXACIN [Suspect]
     Indication: STREPTOCOCCUS TEST POSITIVE
     Dosage: ONE TABLET
     Route: 048
     Dates: start: 20120120, end: 20120123
  2. LEVOFLOXACIN [Suspect]
     Indication: CULTURE THROAT
     Dosage: ONE TABLET
     Route: 048
     Dates: start: 20120120, end: 20120123

REACTIONS (8)
  - PAIN IN EXTREMITY [None]
  - GAIT DISTURBANCE [None]
  - VISUAL IMPAIRMENT [None]
  - JOINT SWELLING [None]
  - DYSSTASIA [None]
  - TENDON PAIN [None]
  - DIPLOPIA [None]
  - ARTHRALGIA [None]
